FAERS Safety Report 26157709 (Version 1)
Quarter: 2025Q4

REPORT INFORMATION
  Report Type: Spontaneous
  Country: US (occurrence: None)
  Receive Date: 20251212
  Receipt Date: 20251212
  Transmission Date: 20260118
  Serious: Yes (Hospitalization)
  Sender: FDA-CTU
  Company Number: None

PATIENT
  Age: 70 Year
  Sex: Female
  Weight: 46.35 kg

DRUGS (3)
  1. CIPROFLOXACIN [Suspect]
     Active Substance: CIPROFLOXACIN
     Indication: Pain prophylaxis
  2. CIPRO 500 MG CAPSULES [Concomitant]
  3. Losartan 50 mg daily [Concomitant]

REACTIONS (12)
  - Asthenia [None]
  - Dysstasia [None]
  - Dyspnoea [None]
  - Guillain-Barre syndrome [None]
  - Headache [None]
  - Tinnitus [None]
  - Pain in jaw [None]
  - Ear pain [None]
  - Neck pain [None]
  - Muscular weakness [None]
  - Paraesthesia [None]
  - Toxicity to various agents [None]

NARRATIVE: CASE EVENT DATE: 20240620
